FAERS Safety Report 11350230 (Version 2)
Quarter: 2015Q3

REPORT INFORMATION
  Report Type: Spontaneous
  Country: GB (occurrence: GB)
  Receive Date: 20150807
  Receipt Date: 20150807
  Transmission Date: 20151125
  Serious: Yes (Other)
  Sender: FDA-Public Use
  Company Number: GB-ACTAVIS-2015-16249

PATIENT
  Age: 31 Year
  Sex: Male
  Weight: 81.5 kg

DRUGS (2)
  1. CITALOPRAM [Suspect]
     Active Substance: CITALOPRAM HYDROBROMIDE
     Indication: PRODUCT USED FOR UNKNOWN INDICATION
     Dosage: 20 MG, UNK; HAD TAKEN FOR A PERIOD OF TIME.
     Route: 048
     Dates: start: 20140717, end: 20141218
  2. QUETIAPINE (UNKNOWN) [Suspect]
     Active Substance: QUETIAPINE
     Indication: PSYCHOTIC DISORDER
     Dosage: 150 MG, BID; HAD TAKEN FOR A PERIOD OF TIME
     Route: 048
     Dates: start: 20130115, end: 20140616

REACTIONS (1)
  - Weight increased [Recovering/Resolving]
